FAERS Safety Report 20620022 (Version 1)
Quarter: 2022Q1

REPORT INFORMATION
  Report Type: Report from Study
  Country: US (occurrence: None)
  Receive Date: 20220322
  Receipt Date: 20220322
  Transmission Date: 20220423
  Serious: Yes (Hospitalization, Other)
  Sender: FDA-Public Use
  Company Number: US-ROCHE-3047300

PATIENT
  Age: 82 Year
  Sex: Female
  Weight: 90.72 kg

DRUGS (2)
  1. OBINUTUZUMAB [Suspect]
     Active Substance: OBINUTUZUMAB
     Indication: Chronic lymphocytic leukaemia
     Dosage: DATE OF LAST ADMINISTRATION: 15/OCT/2019
     Route: 042
     Dates: start: 20191001, end: 20191125
  2. IBRUTINIB [Suspect]
     Active Substance: IBRUTINIB
     Indication: Chronic lymphocytic leukaemia
     Dosage: DATE OF LAST ADMINISTRATION: 12/JAN/2022
     Route: 065
     Dates: start: 20191001

REACTIONS (7)
  - COVID-19 [Unknown]
  - Chronic kidney disease [Recovered/Resolved]
  - Hyponatraemia [Recovered/Resolved]
  - Hypoxia [Recovered/Resolved]
  - Pneumonia [Unknown]
  - Leukocytosis [Unknown]
  - Pulmonary oedema [Unknown]

NARRATIVE: CASE EVENT DATE: 20220112
